FAERS Safety Report 16443570 (Version 1)
Quarter: 2019Q2

REPORT INFORMATION
  Report Type: Spontaneous
  Country: US (occurrence: US)
  Receive Date: 20190618
  Receipt Date: 20190618
  Transmission Date: 20190711
  Serious: Yes (Hospitalization)
  Sender: FDA-Public Use
  Company Number: US-EMMAUS MEDICAL, INC.-EMM201905-000166

PATIENT
  Age: 64 Year
  Sex: Male

DRUGS (11)
  1. HYDROXY UREA [Concomitant]
     Indication: PRODUCT USED FOR UNKNOWN INDICATION
  2. SANDOSTATIN [Concomitant]
     Active Substance: OCTREOTIDE ACETATE
     Indication: PRODUCT USED FOR UNKNOWN INDICATION
  3. ASPIRIN. [Concomitant]
     Active Substance: ASPIRIN
     Indication: PRODUCT USED FOR UNKNOWN INDICATION
  4. ALLOPURINOL. [Concomitant]
     Active Substance: ALLOPURINOL
     Indication: PRODUCT USED FOR UNKNOWN INDICATION
  5. COLASCE [Concomitant]
     Indication: FAECES HARD
  6. FLOMAX [Concomitant]
     Active Substance: TAMSULOSIN HYDROCHLORIDE
     Indication: URINE OUTPUT INCREASED
  7. NORVASC [Concomitant]
     Active Substance: AMLODIPINE BESYLATE
     Indication: PRODUCT USED FOR UNKNOWN INDICATION
  8. FOLIC ACID. [Concomitant]
     Active Substance: FOLIC ACID
     Indication: PRODUCT USED FOR UNKNOWN INDICATION
  9. ENDARI [Suspect]
     Active Substance: GLUTAMINE
     Indication: SICKLE CELL DISEASE
     Route: 048
     Dates: start: 20190312
  10. NOVOLOG (FAST ACTING INSULIN) [Concomitant]
     Indication: TYPE 1 DIABETES MELLITUS
  11. LEVEMIR (SLOW ACTING INSULIN) [Concomitant]
     Indication: TYPE 1 DIABETES MELLITUS

REACTIONS (9)
  - Gastrointestinal disorder [Not Recovered/Not Resolved]
  - Arthropathy [Unknown]
  - Pain [Unknown]
  - Sickle cell anaemia with crisis [Not Recovered/Not Resolved]
  - Surgical vascular shunt [Unknown]
  - Pancreatic disorder [Unknown]
  - Staphylococcal infection [Not Recovered/Not Resolved]
  - Tremor [Unknown]
  - Nausea [Not Recovered/Not Resolved]

NARRATIVE: CASE EVENT DATE: 201902
